FAERS Safety Report 6863572-3 (Version None)
Quarter: 2010Q3

REPORT INFORMATION
  Report Type: 
  Country: None (occurrence: None)
  Receive Date: 20100720
  Receipt Date: 20100712
  Transmission Date: 20110219
  Serious: Yes (Hospitalization)
  Sender: FDA-Public Use
  Company Number: 2010SP038395

PATIENT
  Age: 39 Year
  Sex: Male
  Weight: 68 kg

DRUGS (5)
  1. ROCURONIUM BROMIDE [Suspect]
     Indication: ANAESTHESIA PROCEDURE
     Dosage: 50 MG
  2. PROPOFOL [Suspect]
     Indication: PRODUCT USED FOR UNKNOWN INDICATION
     Dosage: 200 MG;QD;IV
     Route: 042
  3. PARACETAMOL (OTHER MFR) (PARACETAMOL /00020001/) [Suspect]
     Indication: PRODUCT USED FOR UNKNOWN INDICATION
     Dosage: 1 GM;IV
     Route: 042
  4. ISOFLURANE [Suspect]
     Indication: PRODUCT USED FOR UNKNOWN INDICATION
  5. FENTANYL-100 [Suspect]
     Indication: PRODUCT USED FOR UNKNOWN INDICATION
     Dosage: 450 MCG; INBO
     Route: 040

REACTIONS (2)
  - RESPIRATORY ARREST [None]
  - SOMNOLENCE [None]
